FAERS Safety Report 16653298 (Version 1)
Quarter: 2019Q3

REPORT INFORMATION
  Report Type: Spontaneous
  Country: DK (occurrence: DK)
  Receive Date: 20190731
  Receipt Date: 20190731
  Transmission Date: 20191004
  Serious: Yes (Other)
  Sender: FDA-Public Use
  Company Number: DK-MYLANLABS-2019M1067591

PATIENT
  Age: 44 Year
  Sex: Female

DRUGS (1)
  1. VENLAFAXINE [Suspect]
     Active Substance: VENLAFAXINE HYDROCHLORIDE
     Dosage: STYRKE: 75MG DOSIS: 75MG INITIALT FRA 23NOV2017 150MG
     Route: 048
     Dates: start: 20171109

REACTIONS (18)
  - Crying [Recovered/Resolved]
  - Headache [Recovered/Resolved]
  - Hyperhidrosis [Recovered/Resolved]
  - Fatigue [Recovered/Resolved]
  - Weight increased [Recovered/Resolved]
  - Condition aggravated [Recovered/Resolved]
  - Asthenia [Recovered/Resolved]
  - Nausea [Recovered/Resolved]
  - Constipation [Recovered/Resolved]
  - Hallucination [Recovered/Resolved]
  - Syncope [Recovered/Resolved]
  - Anxiety [Recovered/Resolved]
  - Hallucination, auditory [Recovered/Resolved]
  - Dry mouth [Recovered/Resolved]
  - Tinnitus [Recovered/Resolved]
  - Derealisation [Unknown]
  - Anger [Recovered/Resolved]
  - Pollakiuria [Recovered/Resolved]

NARRATIVE: CASE EVENT DATE: 201711
